FAERS Safety Report 4414014-9 (Version None)
Quarter: 2004Q3

REPORT INFORMATION
  Report Type: 
  Country: None (occurrence: None)
  Receive Date: 20040728
  Receipt Date: 20040712
  Transmission Date: 20050211
  Serious: Yes (Hospitalization)
  Sender: FDA-Public Use
  Company Number: JP-JNJFOC-20040201527

PATIENT
  Age: 33 Year
  Sex: Male
  Weight: 55 kg

DRUGS (13)
  1. REMICADE [Suspect]
     Indication: ANAL FISTULA
     Dosage: 300 MG, 1 IN 1 AS NECESSARY, INTRAVENOUS DRIP; SEE IMAGE
     Route: 041
     Dates: start: 20030621, end: 20030621
  2. REMICADE [Suspect]
     Indication: CROHN'S DISEASE
     Dosage: 300 MG, 1 IN 1 AS NECESSARY, INTRAVENOUS DRIP; SEE IMAGE
     Route: 041
     Dates: start: 20030621, end: 20030621
  3. REMICADE [Suspect]
     Indication: ANAL FISTULA
     Dosage: 300 MG, 1 IN 1 AS NECESSARY, INTRAVENOUS DRIP; SEE IMAGE
     Route: 041
     Dates: start: 20030705, end: 20030705
  4. REMICADE [Suspect]
     Indication: CROHN'S DISEASE
     Dosage: 300 MG, 1 IN 1 AS NECESSARY, INTRAVENOUS DRIP; SEE IMAGE
     Route: 041
     Dates: start: 20030705, end: 20030705
  5. REMICADE [Suspect]
     Indication: ANAL FISTULA
     Dosage: 300 MG, 1 IN 1 AS NECESSARY, INTRAVENOUS DRIP; SEE IMAGE
     Route: 041
     Dates: start: 20030809, end: 20030809
  6. REMICADE [Suspect]
     Indication: CROHN'S DISEASE
     Dosage: 300 MG, 1 IN 1 AS NECESSARY, INTRAVENOUS DRIP; SEE IMAGE
     Route: 041
     Dates: start: 20030809, end: 20030809
  7. PREDNISOLONE [Concomitant]
  8. PENTASA [Concomitant]
  9. FLAGYL [Concomitant]
  10. FAMOTIDINE [Concomitant]
  11. HALCION [Concomitant]
  12. MOBIC [Concomitant]
  13. ENTERAL NUTRITION (SOLUTIONS FOR PARENTERAL NUTRITION) [Concomitant]

REACTIONS (4)
  - CANDIDA PNEUMONIA [None]
  - CATHETER RELATED INFECTION [None]
  - HEADACHE [None]
  - INTESTINAL OBSTRUCTION [None]
